FAERS Safety Report 19353017 (Version 2)
Quarter: 2021Q2

REPORT INFORMATION
  Report Type: Report from Study
  Country: CA (occurrence: CA)
  Receive Date: 20210531
  Receipt Date: 20210611
  Transmission Date: 20210717
  Serious: Yes (Hospitalization, Other)
  Sender: FDA-Public Use
  Company Number: CA-JNJFOC-20210542409

PATIENT
  Age: 65 Year
  Sex: Female

DRUGS (8)
  1. LEVOTHYROXINE. [Concomitant]
     Active Substance: LEVOTHYROXINE
  2. BOSENTAN. [Suspect]
     Active Substance: BOSENTAN
     Indication: PULMONARY HYPERTENSION
     Route: 048
     Dates: start: 20201211
  3. LANSOPRAZOLE. [Concomitant]
     Active Substance: LANSOPRAZOLE
  4. DIGOXIN. [Concomitant]
     Active Substance: DIGOXIN
  5. REVATIO [Concomitant]
     Active Substance: SILDENAFIL CITRATE
  6. SELEXIPAG [Suspect]
     Active Substance: SELEXIPAG
     Indication: PULMONARY HYPERTENSION
     Route: 048
     Dates: start: 20161201
  7. LASIX [Concomitant]
     Active Substance: FUROSEMIDE
  8. APIXABAN [Concomitant]
     Active Substance: APIXABAN

REACTIONS (4)
  - Pleural effusion [Recovering/Resolving]
  - Hospitalisation [Recovering/Resolving]
  - Atrial fibrillation [Unknown]
  - Product dose omission issue [Unknown]

NARRATIVE: CASE EVENT DATE: 20210525
